FAERS Safety Report 9267571 (Version 4)
Quarter: 2013Q2

REPORT INFORMATION
  Report Type: Spontaneous
  Country: DE (occurrence: DE)
  Receive Date: 20130502
  Receipt Date: 20130523
  Transmission Date: 20140414
  Serious: Yes (Disabling)
  Sender: FDA-Public Use
  Company Number: DE-GLAXOSMITHKLINE-D0079665A

PATIENT
  Age: 72 Year
  Sex: Male
  Weight: 88 kg

DRUGS (4)
  1. VOTRIENT [Suspect]
     Indication: SARCOMA
     Dosage: 200MG PER DAY
     Route: 048
     Dates: start: 20130304, end: 20130425
  2. RAMIPRIL [Concomitant]
     Indication: HYPERTENSION
     Dosage: 5MG TWICE PER DAY
     Route: 065
     Dates: start: 2000
  3. SIMVASTATIN [Concomitant]
     Indication: HYPERCHOLESTEROLAEMIA
     Dosage: 10MG TWICE PER DAY
     Route: 065
     Dates: start: 2000
  4. ASS 100 [Concomitant]
     Indication: HYPERTENSION
     Route: 065
     Dates: start: 2000

REACTIONS (3)
  - Retinal detachment [Recovered/Resolved with Sequelae]
  - Diarrhoea [Recovered/Resolved]
  - Weight decreased [Recovering/Resolving]
